FAERS Safety Report 5754422-7 (Version None)
Quarter: 2008Q2

REPORT INFORMATION
  Report Type: 
  Country: None (occurrence: None)
  Receive Date: 20080530
  Receipt Date: 20080505
  Transmission Date: 20081010
  Serious: No
  Sender: FDA-Public Use
  Company Number: US-BOEHRINGER INGELHEIM GMBH, GERMANY-2008-BP-05474BP

PATIENT
  Sex: Male

DRUGS (7)
  1. CATAPRES-TTS-1 [Suspect]
     Indication: HYPERTENSION
     Route: 061
     Dates: start: 20080101, end: 20080301
  2. LIPITOR [Concomitant]
     Indication: BLOOD CHOLESTEROL INCREASED
  3. SYNTHROID [Concomitant]
     Indication: HYPOTHYROIDISM
  4. ASPIRIN [Concomitant]
     Indication: PROPHYLAXIS
  5. LEVOXYL [Concomitant]
  6. LOTREL [Concomitant]
  7. CLONIDINE [Concomitant]

REACTIONS (2)
  - APPLICATION SITE BURN [None]
  - APPLICATION SITE RASH [None]
